FAERS Safety Report 10080795 (Version 3)
Quarter: 2014Q2

REPORT INFORMATION
  Report Type: Spontaneous
  Country: US (occurrence: US)
  Receive Date: 20140416
  Receipt Date: 20140506
  Transmission Date: 20141212
  Serious: Yes (Hospitalization)
  Sender: FDA-Public Use
  Company Number: US-JNJFOC-20140406406

PATIENT
  Age: 81 Year
  Sex: Female
  Weight: 56 kg

DRUGS (3)
  1. RIVAROXABAN [Suspect]
     Indication: CEREBROVASCULAR ACCIDENT PROPHYLAXIS
     Route: 048
  2. RIVAROXABAN [Suspect]
     Indication: ATRIAL FIBRILLATION
     Route: 048
  3. ASPIRIN [Suspect]
     Indication: ANTIPLATELET THERAPY
     Route: 065

REACTIONS (1)
  - Gastrointestinal haemorrhage [Recovering/Resolving]
